FAERS Safety Report 13085407 (Version 1)
Quarter: 2017Q1

REPORT INFORMATION
  Report Type: Spontaneous
  Country: KR (occurrence: KR)
  Receive Date: 20170104
  Receipt Date: 20170104
  Transmission Date: 20170428
  Serious: Yes (Other)
  Sender: FDA-Public Use
  Company Number: KR-009507513-1701KOR000938

PATIENT
  Age: 42 Year
  Sex: Female
  Weight: 54 kg

DRUGS (16)
  1. H2 TAB [Concomitant]
     Dosage: 200 MG, TID
     Route: 048
     Dates: start: 20160907, end: 20160911
  2. DAGES CAP [Concomitant]
     Indication: PROPHYLAXIS
     Dosage: 1 CAPSULE, TID
     Route: 048
     Dates: start: 20160907, end: 20160911
  3. DEXAMETHASONE. [Concomitant]
     Active Substance: DEXAMETHASONE
     Indication: PROPHYLAXIS OF NAUSEA AND VOMITING
     Dosage: 8 MG, QD
     Route: 048
     Dates: start: 20160907, end: 20160909
  4. EMEND (FOSAPREPITANT DIMEGLUMINE) [Suspect]
     Active Substance: FOSAPREPITANT DIMEGLUMINE
     Dosage: 150 MG, ONCE
     Route: 042
     Dates: start: 20161101, end: 20161101
  5. TACENOL [Concomitant]
     Indication: ANALGESIC THERAPY
     Dosage: 650 MG, TID
     Route: 048
     Dates: start: 20160907, end: 20161219
  6. EMEND (FOSAPREPITANT DIMEGLUMINE) [Suspect]
     Active Substance: FOSAPREPITANT DIMEGLUMINE
     Indication: PROPHYLAXIS OF NAUSEA AND VOMITING
     Dosage: 150 MG, ONCE
     Route: 042
     Dates: start: 20160906, end: 20160906
  7. ADRIAMYCIN [Concomitant]
     Active Substance: DOXORUBICIN HYDROCHLORIDE
     Indication: BREAST CANCER
     Dosage: 95 MG, ONCE 1 CYCLE
     Route: 042
     Dates: start: 20160906, end: 20160906
  8. ALOXI [Concomitant]
     Active Substance: PALONOSETRON HYDROCHLORIDE
     Indication: PROPHYLAXIS OF NAUSEA AND VOMITING
     Dosage: 0.25 MG, ONCE
     Route: 042
     Dates: start: 20160906, end: 20160906
  9. MECPERAN [Concomitant]
     Indication: PROPHYLAXIS OF NAUSEA AND VOMITING
     Dosage: 5 MG, TID
     Route: 048
     Dates: start: 20160907, end: 20160911
  10. EMEND (FOSAPREPITANT DIMEGLUMINE) [Suspect]
     Active Substance: FOSAPREPITANT DIMEGLUMINE
     Dosage: 150 MG, ONCE
     Route: 042
     Dates: start: 20161006, end: 20161006
  11. DEXA (DEXAMETHASONE SODIUM PHOSPHATE) [Concomitant]
     Indication: PROPHYLAXIS OF NAUSEA AND VOMITING
     Dosage: 10 MG, ONCE
     Route: 042
     Dates: start: 20160906, end: 20160906
  12. H2 TAB [Concomitant]
     Indication: PROPHYLAXIS
     Dosage: 200 MG, TID
     Route: 048
     Dates: start: 20160829, end: 20160904
  13. BISCAN [Concomitant]
     Indication: PROPHYLAXIS
     Dosage: 500 MG, TID
     Route: 048
     Dates: start: 20160907, end: 20160916
  14. EMEND (FOSAPREPITANT DIMEGLUMINE) [Suspect]
     Active Substance: FOSAPREPITANT DIMEGLUMINE
     Dosage: 150 MG, ONCE
     Route: 042
     Dates: start: 20161129, end: 20161129
  15. ENDOXAN [Concomitant]
     Active Substance: CYCLOPHOSPHAMIDE
     Indication: BREAST CANCER
     Dosage: 950 MG, ONCE, 1 CYCLE
     Route: 042
     Dates: start: 20160906
  16. CEPHAMETHYL [Concomitant]
     Indication: POSTOPERATIVE WOUND INFECTION
     Dosage: 1000 MG, TID
     Route: 048
     Dates: start: 20160829, end: 20160904

REACTIONS (1)
  - Tooth abscess [Recovered/Resolved]

NARRATIVE: CASE EVENT DATE: 20160915
